FAERS Safety Report 12914625 (Version 1)
Quarter: 2016Q4

REPORT INFORMATION
  Report Type: Spontaneous
  Country: US (occurrence: US)
  Receive Date: 20161106
  Receipt Date: 20161106
  Transmission Date: 20170207
  Serious: No
  Sender: FDA-Public Use
  Company Number: US-RELYPSA-RLY2016003230

PATIENT
  Age: 85 Year
  Sex: Female

DRUGS (2)
  1. FLU [Concomitant]
     Active Substance: INFLUENZA VIRUS VACCINE
     Dosage: UNK
     Dates: start: 20161014
  2. VELTASSA [Suspect]
     Active Substance: PATIROMER
     Indication: BLOOD POTASSIUM INCREASED
     Dosage: 8.4 G, QD
     Route: 048
     Dates: start: 2016

REACTIONS (5)
  - Pain [Unknown]
  - Nasopharyngitis [Not Recovered/Not Resolved]
  - Gait disturbance [Unknown]
  - Urinary tract infection [Unknown]
  - Constipation [Unknown]

NARRATIVE: CASE EVENT DATE: 20151010
